FAERS Safety Report 16153110 (Version 2)
Quarter: 2020Q1

REPORT INFORMATION
  Report Type: Report from Study
  Country: None (occurrence: CO)
  Receive Date: 20190403
  Receipt Date: 20200303
  Transmission Date: 20200409
  Serious: Yes (Hospitalization, Other)
  Sender: FDA-Public Use
  Company Number: CO-ABBVIE-18K-036-2599817-00

PATIENT
  Age: 58 Year
  Sex: Female
  Weight: 68 kg

DRUGS (4)
  1. HUMIRA [Suspect]
     Active Substance: ADALIMUMAB
     Indication: ANKYLOSING SPONDYLITIS
     Route: 058
     Dates: start: 20121227
  2. HUMIRA [Suspect]
     Active Substance: ADALIMUMAB
     Indication: ANKYLOSING SPONDYLITIS
     Route: 058
  3. SULFASALAZINE. [Concomitant]
     Active Substance: SULFASALAZINE
     Indication: PRODUCT USED FOR UNKNOWN INDICATION
  4. CELECOXIB. [Concomitant]
     Active Substance: CELECOXIB
     Indication: PRODUCT USED FOR UNKNOWN INDICATION

REACTIONS (4)
  - Osteoarthritis [Not Recovered/Not Resolved]
  - Weight increased [Unknown]
  - Arthralgia [Unknown]
  - Spinal pain [Unknown]

NARRATIVE: CASE EVENT DATE: 201804
